FAERS Safety Report 8348096 (Version 3)
Quarter: 2012Q4

REPORT INFORMATION
  Report Type: 
  Country: US (occurrence: US)
  Receive Date: 20120123
  Receipt Date: 20120925
  Transmission Date: 20130627
  Serious: Yes (Other)
  Sender: FDA-Public Use
  Company Number: US-ELI_LILLY_AND_COMPANY-US201106002829

PATIENT
  Age: 51 None
  Sex: Female

DRUGS (28)
  1. FORTEO [Suspect]
     Indication: OSTEOPOROSIS
     Dosage: 20 ug, qd
  2. FORTEO [Suspect]
     Dosage: 20 ug, qd
  3. FORTEO [Suspect]
     Dosage: 20 ug, qd
  4. FORTEO [Suspect]
     Dosage: 20 ug, qd
  5. FORTEO [Suspect]
     Dosage: 20 ug, qd
  6. FORTEO [Suspect]
     Dosage: 20 ug, qd
  7. ACETAZOLAMIDE [Concomitant]
  8. AMLODIPINE [Concomitant]
  9. ATENOLOL [Concomitant]
     Dosage: 0.5 DF, qd
  10. CLONAZEPAM [Concomitant]
     Dosage: 2 DF, bid
  11. FLOVENT [Concomitant]
     Dosage: 2 DF, qd
  12. FOLIC ACID [Concomitant]
     Dosage: 1 mg, qd
  13. DIHYDROCODEINE [Concomitant]
  14. ACETAMINOPHEN [Concomitant]
  15. HYDROXYZINE HYDROCHLORIDE [Concomitant]
  16. IBUPROFEN [Concomitant]
  17. KLOR-CON [Concomitant]
     Dosage: 20 mEq, qd
  18. LUMIGAN [Concomitant]
  19. LEXAPRO [Concomitant]
     Dosage: 20 mg, qd
  20. LYRICA [Concomitant]
     Dosage: 2 DF, qd
  21. NAPROXEN [Concomitant]
     Dosage: 2 DF, bid
  22. OMEPRAZOLE [Concomitant]
     Dosage: 20 mg, qd
  23. OXYCODONE [Concomitant]
     Dosage: 1 DF, every 4 hrs
  24. TRAMADOL [Concomitant]
     Dosage: 2 DF, bid
  25. THIAMINE [Concomitant]
     Dosage: 100 mg, qd
  26. VITAMIN D NOS [Concomitant]
     Dosage: 3000 mg, qd
  27. CALCIUM [Concomitant]
     Dosage: 3000 u, qd
  28. OMEGA 3 FISH OIL [Concomitant]
     Indication: SUPPLEMENTATION THERAPY

REACTIONS (23)
  - Cerebral atrophy [Unknown]
  - Intervertebral disc degeneration [Not Recovered/Not Resolved]
  - Balance disorder [Unknown]
  - Nasopharyngitis [Unknown]
  - Tremor [Not Recovered/Not Resolved]
  - Malaise [Unknown]
  - Back pain [Not Recovered/Not Resolved]
  - Muscular weakness [Unknown]
  - Visual impairment [Unknown]
  - Erythema [Unknown]
  - Eyelid disorder [Unknown]
  - Sluggishness [Unknown]
  - Road traffic accident [Unknown]
  - Vitamin D decreased [Unknown]
  - Weight decreased [Unknown]
  - Fall [Unknown]
  - Injection site erythema [Not Recovered/Not Resolved]
  - Injection site pruritus [Not Recovered/Not Resolved]
  - Injection site pain [Not Recovered/Not Resolved]
  - Injection site bruising [Not Recovered/Not Resolved]
  - Drug dose omission [Unknown]
  - Blood iron decreased [Unknown]
  - Drug dose omission [Unknown]
